FAERS Safety Report 8785800 (Version 1)
Quarter: 2012Q4

REPORT INFORMATION
  Report Type: 
  Country: FR (occurrence: FR)
  Receive Date: 20120914
  Receipt Date: 20120914
  Transmission Date: 20130627
  Serious: Yes (Hospitalization)
  Sender: FDA-Public Use
  Company Number: FR-GLAXOSMITHKLINE-B0828364A

PATIENT
  Age: 57 Year
  Sex: Male

DRUGS (3)
  1. ZELITREX [Suspect]
     Indication: HERPES ZOSTER
     Dosage: 500MG Three times per day
     Route: 048
     Dates: start: 20120727, end: 20120808
  2. GLUCOPHAGE [Concomitant]
     Route: 048
  3. COVERSYL [Concomitant]

REACTIONS (5)
  - Renal failure [Recovering/Resolving]
  - Encephalopathy [Recovering/Resolving]
  - Dysarthria [Recovering/Resolving]
  - Balance disorder [Recovering/Resolving]
  - Hyperkalaemia [Unknown]
